FAERS Safety Report 4474763-3 (Version None)
Quarter: 2004Q3

REPORT INFORMATION
  Report Type: 
  Country: None (occurrence: None)
  Receive Date: 20040923
  Receipt Date: 20040611
  Transmission Date: 20050211
  Serious: No
  Sender: FDA-Public Use
  Company Number: USA040669971

PATIENT
  Age: 52 Year
  Sex: Male

DRUGS (1)
  1. FORTEO [Suspect]
     Dates: start: 20040301, end: 20040607

REACTIONS (4)
  - BONE PAIN [None]
  - FEELING ABNORMAL [None]
  - HOT FLUSH [None]
  - NAUSEA [None]
